FAERS Safety Report 4378114-4 (Version None)
Quarter: 2004Q2

REPORT INFORMATION
  Report Type: 
  Country: None (occurrence: None)
  Receive Date: 20040616
  Receipt Date: 20040329
  Transmission Date: 20050107
  Serious: Yes (Other)
  Sender: FDA-Public Use
  Company Number: PHNU2004DE01374

PATIENT
  Age: 64 Year
  Sex: Female

DRUGS (8)
  1. FORADIL [Suspect]
     Indication: ASTHMA
     Dosage: 1 DF, QD
     Dates: start: 20040201, end: 20040323
  2. FORADIL [Suspect]
     Dosage: UNK, PRN
     Dates: start: 20030101, end: 20040201
  3. TRAMAL [Concomitant]
     Indication: BACK PAIN
     Route: 065
  4. PROTHYRID [Concomitant]
     Indication: HYPOTHYROIDISM
     Dosage: UNK, UNK
     Route: 048
  5. INSULIN ACTRAPID ^NOVO NORDISK^ [Concomitant]
     Indication: DIABETES MELLITUS INSULIN-DEPENDENT
     Route: 058
  6. INSULIN PROTAPHAN HM (GE) [Concomitant]
     Indication: DIABETES MELLITUS INSULIN-DEPENDENT
     Route: 058
  7. EUPHYLONG [Concomitant]
     Dosage: 250 MG, BID
     Route: 048
  8. ASPIRIN [Concomitant]
     Indication: RETINAL HAEMORRHAGE
     Dosage: 100 MG, PRN
     Route: 065

REACTIONS (4)
  - FUNDOSCOPY ABNORMAL [None]
  - RETINAL HAEMORRHAGE [None]
  - VISION BLURRED [None]
  - VISUAL ACUITY REDUCED [None]
